FAERS Safety Report 15426472 (Version 2)
Quarter: 2019Q1

REPORT INFORMATION
  Report Type: Spontaneous
  Country: ES (occurrence: ES)
  Receive Date: 20180925
  Receipt Date: 20190306
  Transmission Date: 20190417
  Serious: Yes (Other)
  Sender: FDA-Public Use
  Company Number: ES-PFIZER INC-2018383652

PATIENT
  Age: 74 Year
  Sex: Male
  Weight: 66 kg

DRUGS (4)
  1. ZITROMAX [Suspect]
     Active Substance: AZITHROMYCIN
     Indication: PNEUMONIA
     Dosage: 500 MG, SINGLE
     Route: 042
     Dates: start: 20180404, end: 20180404
  2. LOSARTAN PENSA [Concomitant]
     Dosage: 25 MG, 1X/DAY
     Route: 048
  3. PANTOPRAZOL BEXAL [Concomitant]
     Dosage: 20 MG, 1X/DAY
     Route: 048
  4. CEFTRIAXONA NORMON [Concomitant]
     Dosage: UNK
     Route: 042
     Dates: start: 20180404

REACTIONS (4)
  - Diplopia [Recovered/Resolved]
  - Injection site pain [Recovered/Resolved]
  - Agitation [Recovered/Resolved]
  - Hyperhidrosis [Recovered/Resolved]

NARRATIVE: CASE EVENT DATE: 20180404
